FAERS Safety Report 13090192 (Version 1)
Quarter: 2017Q1

REPORT INFORMATION
  Report Type: Spontaneous
  Country: FR (occurrence: FR)
  Receive Date: 20170105
  Receipt Date: 20170105
  Transmission Date: 20170428
  Serious: Yes (Other)
  Sender: FDA-Public Use
  Company Number: FR-ELI_LILLY_AND_COMPANY-FR201612010085

PATIENT
  Age: 53 Year
  Sex: Male

DRUGS (12)
  1. ZYPREXA [Suspect]
     Active Substance: OLANZAPINE
     Dosage: 20 MG, QD
     Route: 048
     Dates: start: 20161209, end: 20161211
  2. VALIUM [Concomitant]
     Active Substance: DIAZEPAM
     Indication: ANXIETY
     Dosage: 10 MG, EVERY 6 HRS
     Route: 048
     Dates: start: 20161208, end: 20161210
  3. NORSET [Concomitant]
     Active Substance: MIRTAZAPINE
     Dosage: 45 MG, QD
     Route: 048
     Dates: start: 20161209, end: 20161210
  4. ZYPREXA [Suspect]
     Active Substance: OLANZAPINE
     Dosage: 15 MG, QD
     Route: 048
     Dates: start: 20161207
  5. TERCIAN                            /00759301/ [Suspect]
     Active Substance: CYAMEMAZINE
     Dosage: 50 MG, EVERY 6 HRS
     Route: 048
  6. NORSET [Concomitant]
     Active Substance: MIRTAZAPINE
     Indication: DEPRESSION
     Dosage: 15 MG, EVERY 6 HRS
     Route: 048
  7. THERALENE [Concomitant]
     Active Substance: TRIMEPRAZINE
     Indication: PRODUCT USED FOR UNKNOWN INDICATION
     Dosage: 15 MG, QD
     Route: 048
     Dates: end: 20161210
  8. ZYPREXA [Suspect]
     Active Substance: OLANZAPINE
     Indication: MAJOR DEPRESSION
     Dosage: 10 MG, QD
     Route: 048
     Dates: start: 20161204
  9. TERCIAN                            /00759301/ [Suspect]
     Active Substance: CYAMEMAZINE
     Dosage: 75 MG, EVERY 6 HRS
     Route: 048
     Dates: start: 20161210, end: 20161210
  10. TERCIAN                            /00759301/ [Suspect]
     Active Substance: CYAMEMAZINE
     Indication: MAJOR DEPRESSION
     Dosage: 25 MG, EVERY 6 HRS
     Route: 048
     Dates: start: 20161207
  11. SERESTA [Concomitant]
     Active Substance: OXAZEPAM
     Indication: ANXIETY
     Dosage: 25 MG, EVERY 6 HRS
     Route: 048
     Dates: end: 20161208
  12. NORSET [Concomitant]
     Active Substance: MIRTAZAPINE
     Dosage: 30 MG, QD
     Route: 048
     Dates: start: 20161204

REACTIONS (9)
  - Fall [Unknown]
  - Dehydration [Unknown]
  - Hyperhidrosis [Unknown]
  - Periorbital haematoma [Unknown]
  - Extrapyramidal disorder [Unknown]
  - Neuroleptic malignant syndrome [Recovering/Resolving]
  - Disturbance in attention [Unknown]
  - Visual impairment [Unknown]
  - Dysarthria [Unknown]

NARRATIVE: CASE EVENT DATE: 20161211
